FAERS Safety Report 19807792 (Version 5)
Quarter: 2021Q4

REPORT INFORMATION
  Report Type: Spontaneous
  Country: IT (occurrence: IT)
  Receive Date: 20210908
  Receipt Date: 20211109
  Transmission Date: 20220303
  Serious: Yes (Disabling)
  Sender: FDA-Public Use
  Company Number: None

PATIENT
  Sex: Female
  Weight: 50 kg

DRUGS (4)
  1. SILODOSIN [Suspect]
     Active Substance: SILODOSIN
     Indication: Urinary retention
     Dosage: 4 MG
  2. SILODOSIN [Suspect]
     Active Substance: SILODOSIN
     Dosage: 8 MG, QD
     Route: 048
     Dates: start: 20210415, end: 20210507
  3. URORIAL food supplement (hyaluronic acid, vit C, D Mannose,  Cranberry [Concomitant]
  4. DELORAZEPAM [Concomitant]
     Active Substance: DELORAZEPAM
     Indication: Sleep disorder
     Dosage: UNK

REACTIONS (8)
  - Blood pressure decreased [Recovered/Resolved]
  - Tinnitus [Recovered/Resolved]
  - Intentional product use issue [Unknown]
  - Nausea [Recovered/Resolved]
  - Vomiting [Recovered/Resolved]
  - Misophonia [Recovered/Resolved]
  - Dizziness [Recovered/Resolved]
  - Headache [Recovered/Resolved]

NARRATIVE: CASE EVENT DATE: 20210418
